FAERS Safety Report 9120337 (Version 1)
Quarter: 2013Q1

REPORT INFORMATION
  Report Type: Spontaneous
  Country: IT (occurrence: IT)
  Receive Date: 20130226
  Receipt Date: 20130226
  Transmission Date: 20140127
  Serious: Yes (Life-Threatening)
  Sender: FDA-Public Use
  Company Number: IT-TEVA-387670ISR

PATIENT
  Age: 44 Year
  Sex: Male

DRUGS (8)
  1. LORAZEPAM [Suspect]
     Dosage: 50 MILLIGRAM DAILY;
     Route: 048
     Dates: start: 20130117, end: 20130117
  2. CONTRAMAL [Suspect]
     Dosage: 10 DOSAGE FORMS DAILY;
     Route: 048
     Dates: start: 20130117, end: 20130117
  3. DISULFIRAM [Suspect]
     Dosage: 12 GRAM DAILY;
     Route: 048
     Dates: start: 20130117, end: 20130117
  4. CYMBALTA [Concomitant]
  5. SINGULAIR [Concomitant]
  6. DEPAKIN CHRONO [Concomitant]
  7. ESOMEPRAZOLO DOC GENERICI [Concomitant]
  8. CETIRIZINA ACTAVIS [Concomitant]

REACTIONS (4)
  - Vomiting [Unknown]
  - Sopor [Unknown]
  - Myoglobin blood increased [Unknown]
  - Drug abuse [Unknown]
